FAERS Safety Report 7634004-2 (Version None)
Quarter: 2011Q3

REPORT INFORMATION
  Report Type: 
  Country: None (occurrence: None)
  Receive Date: 20110725
  Receipt Date: 20110714
  Transmission Date: 20111222
  Serious: Yes (Other)
  Sender: FDA-Public Use
  Company Number: CA-ASTRAZENECA-2011SE42578

PATIENT
  Age: 69 Year
  Sex: Female

DRUGS (1)
  1. VIMOVO [Suspect]
     Indication: RHEUMATOID ARTHRITIS
     Dosage: 375/20 MG, DAILY
     Route: 048

REACTIONS (1)
  - TRANSIENT ISCHAEMIC ATTACK [None]
